FAERS Safety Report 4438884-3 (Version None)
Quarter: 2004Q3

REPORT INFORMATION
  Report Type: 
  Country: None (occurrence: None)
  Receive Date: 20040830
  Receipt Date: 20040820
  Transmission Date: 20050211
  Serious: Yes (Disabling)
  Sender: FDA-Public Use
  Company Number: 200219978

PATIENT
  Age: 48 Year
  Sex: Female
  Weight: 67.1324 kg

DRUGS (14)
  1. BOTOX [Suspect]
     Indication: MIGRAINE
     Dosage: 210 UNITS PRN IM
     Route: 030
     Dates: start: 20010301
  2. BOTOX [Suspect]
     Indication: MUSCLE SPASTICITY
     Dosage: 210 UNITS PRN IM
     Route: 030
     Dates: start: 20010301
  3. BOTOX [Suspect]
     Indication: TENSION HEADACHE
     Dosage: 210 UNITS PRN IM
     Route: 030
     Dates: start: 20010301
  4. ZONEGRAN [Concomitant]
  5. TOPAMAX [Concomitant]
  6. ZYRTEC [Concomitant]
  7. SYNTHROID [Concomitant]
  8. ALESSE [Concomitant]
  9. ZOLOFT [Concomitant]
  10. MAGNESIUM [Concomitant]
  11. AMERGE [Concomitant]
  12. ZOMIG [Concomitant]
  13. FROVA [Concomitant]
  14. TAGAMET [Concomitant]

REACTIONS (10)
  - ARTHRALGIA [None]
  - INSOMNIA [None]
  - MUSCLE ATROPHY [None]
  - MUSCLE SPASMS [None]
  - MUSCULOSKELETAL STIFFNESS [None]
  - MYALGIA [None]
  - OEDEMA PERIPHERAL [None]
  - PAIN [None]
  - PARAESTHESIA [None]
  - TREMOR [None]
